FAERS Safety Report 13457519 (Version 1)
Quarter: 2017Q2

REPORT INFORMATION
  Report Type: Spontaneous
  Country: US (occurrence: US)
  Receive Date: 20170419
  Receipt Date: 20170419
  Transmission Date: 20170830
  Serious: No
  Sender: FDA-Public Use
  Company Number: US-TEVA-730980ACC

PATIENT
  Sex: Female

DRUGS (1)
  1. MORPHINE EXTENDED RELEASE [Suspect]
     Active Substance: MORPHINE
     Indication: BACK PAIN

REACTIONS (6)
  - Hot flush [Unknown]
  - Headache [Unknown]
  - Product substitution issue [Unknown]
  - Malaise [Unknown]
  - Influenza [Unknown]
  - Abdominal discomfort [Unknown]

NARRATIVE: CASE EVENT DATE: 20160105
